FAERS Safety Report 8968312 (Version 1)
Quarter: 2012Q4

REPORT INFORMATION
  Report Type: Spontaneous
  Country: US (occurrence: None)
  Receive Date: 20121214
  Receipt Date: 20121214
  Transmission Date: 20130627
  Serious: Yes (Other)
  Sender: FDA-Public Use
  Company Number: None

PATIENT
  Age: 43 Year
  Sex: Female
  Weight: 81.65 kg

DRUGS (1)
  1. LEVOFLOXACIN [Suspect]
     Indication: UTI
     Dosage: 1       Daily    po
     Route: 048
     Dates: start: 20121130, end: 20121130

REACTIONS (10)
  - Dysstasia [None]
  - Muscle disorder [None]
  - Hypoaesthesia [None]
  - Anxiety [None]
  - Psychotic disorder [None]
  - Suicidal ideation [None]
  - Homicidal ideation [None]
  - Muscular weakness [None]
  - Incoherent [None]
  - Paraesthesia [None]
